FAERS Safety Report 7228958-6 (Version None)
Quarter: 2011Q1

REPORT INFORMATION
  Report Type: 
  Country: None (occurrence: None)
  Receive Date: 20110117
  Receipt Date: 20110107
  Transmission Date: 20110831
  Serious: Yes (Other)
  Sender: FDA-Public Use
  Company Number: US-SOLVAY-00211000147

PATIENT
  Sex: Male
  Weight: 71.818 kg

DRUGS (1)
  1. CREON PANCRELIPASE [Suspect]
     Indication: GASTROINTESTINAL CARCINOMA
     Dosage: DAILY DOSE:  UNKNOWN
     Route: 065
     Dates: start: 20090101

REACTIONS (2)
  - DIARRHOEA [None]
  - PANCREATICODUODENECTOMY [None]
